FAERS Safety Report 17709639 (Version 6)
Quarter: 2023Q1

REPORT INFORMATION
  Report Type: Spontaneous
  Country: US (occurrence: None)
  Receive Date: 20200427
  Receipt Date: 20230228
  Transmission Date: 20230418
  Serious: Yes (Death, Other)
  Sender: FDA-Public Use
  Company Number: 2020SE54382

PATIENT
  Age: 72 Year
  Sex: Male
  Weight: 85.3 kg

DRUGS (42)
  1. NEXIUM [Suspect]
     Active Substance: ESOMEPRAZOLE MAGNESIUM
     Indication: Gastrooesophageal reflux disease
     Route: 048
     Dates: start: 200601, end: 201301
  2. NEXIUM [Suspect]
     Active Substance: ESOMEPRAZOLE MAGNESIUM
     Indication: Gastrooesophageal reflux disease
     Route: 048
     Dates: start: 20060101, end: 20130101
  3. NEXIUM [Suspect]
     Active Substance: ESOMEPRAZOLE MAGNESIUM
     Indication: Gastrooesophageal reflux disease
     Route: 048
     Dates: start: 2006, end: 2013
  4. OMEPRAZOLE [Suspect]
     Active Substance: OMEPRAZOLE
     Indication: Gastrooesophageal reflux disease
     Route: 065
     Dates: start: 20130419, end: 20160611
  5. OMEPRAZOLE [Suspect]
     Active Substance: OMEPRAZOLE
     Indication: Gastrooesophageal reflux disease
     Dosage: GENERIC
     Route: 065
     Dates: start: 2013, end: 2016
  6. PREVACID [Suspect]
     Active Substance: LANSOPRAZOLE
     Indication: Gastrooesophageal reflux disease
     Route: 065
     Dates: start: 20060905
  7. PREVACID [Suspect]
     Active Substance: LANSOPRAZOLE
     Indication: Gastrooesophageal reflux disease
     Route: 065
     Dates: start: 200609, end: 200610
  8. ASPIRIN [Concomitant]
     Active Substance: ASPIRIN
     Indication: Anticoagulant therapy
     Dates: start: 2014, end: 2019
  9. ZETIA [Concomitant]
     Active Substance: EZETIMIBE
  10. ZOLOFT [Concomitant]
     Active Substance: SERTRALINE HYDROCHLORIDE
  11. PRAVACHOL [Concomitant]
     Active Substance: PRAVASTATIN SODIUM
  12. NEURONTIN [Concomitant]
     Active Substance: GABAPENTIN
  13. LOPRESSOR [Concomitant]
     Active Substance: METOPROLOL TARTRATE
  14. LOVENOX [Concomitant]
     Active Substance: ENOXAPARIN SODIUM
  15. COZAAR [Concomitant]
     Active Substance: LOSARTAN POTASSIUM
  16. CILOSTAZOL [Concomitant]
     Active Substance: CILOSTAZOL
  17. DOXAZOSIN [Concomitant]
     Active Substance: DOXAZOSIN MESYLATE
  18. LISINOPRIL [Concomitant]
     Active Substance: LISINOPRIL
     Indication: Hypertension
     Dates: start: 2011, end: 2017
  19. MELOXICAM [Concomitant]
     Active Substance: MELOXICAM
     Indication: Antiinflammatory therapy
     Dates: start: 2012, end: 2013
  20. CIPROFLOXACIN [Concomitant]
     Active Substance: CIPROFLOXACIN
     Indication: Infection
     Dates: start: 2013
  21. ATORVASTATIN [Concomitant]
     Active Substance: ATORVASTATIN
     Indication: Blood cholesterol abnormal
     Dates: start: 2013
  22. CRESTOR [Concomitant]
     Active Substance: ROSUVASTATIN CALCIUM
     Indication: Blood cholesterol abnormal
     Dates: start: 2012, end: 2016
  23. ROSUVASTATIN [Concomitant]
     Active Substance: ROSUVASTATIN
     Indication: Blood cholesterol abnormal
     Dates: start: 2016, end: 2017
  24. FAMOTIDINE [Concomitant]
     Active Substance: FAMOTIDINE
     Dates: start: 2016, end: 2017
  25. ALBUTEROL [Concomitant]
     Active Substance: ALBUTEROL
  26. GABAPENTIN [Concomitant]
     Active Substance: GABAPENTIN
  27. GLIMEPIRIDE [Concomitant]
     Active Substance: GLIMEPIRIDE
  28. JANUVIA [Concomitant]
     Active Substance: SITAGLIPTIN PHOSPHATE
  29. METOPROLOL TARTRATE [Concomitant]
     Active Substance: METOPROLOL TARTRATE
  30. TIZANIDINE [Concomitant]
     Active Substance: TIZANIDINE
  31. JANUMET [Concomitant]
     Active Substance: METFORMIN HYDROCHLORIDE\SITAGLIPTIN PHOSPHATE
  32. FINASTERIDE [Concomitant]
     Active Substance: FINASTERIDE
  33. PREDNISOLONE [Concomitant]
     Active Substance: PREDNISOLONE
  34. ACARBOSE [Concomitant]
     Active Substance: ACARBOSE
  35. SULFAMETHOXAZOLE\TRIMETHOPRIM [Concomitant]
     Active Substance: SULFAMETHOXAZOLE\TRIMETHOPRIM
  36. METRONIDAZOLONE [Concomitant]
  37. LANTUS SOLOSTAR [Concomitant]
     Active Substance: INSULIN GLARGINE
  38. GLYBURIDE [Concomitant]
     Active Substance: GLYBURIDE
  39. NIACIN [Concomitant]
     Active Substance: NIACIN
  40. VITAMINS [Concomitant]
     Active Substance: VITAMINS
     Indication: Hypovitaminosis
     Dates: start: 2014, end: 2019
  41. FISH OIL [Concomitant]
     Active Substance: FISH OIL
     Indication: Hypovitaminosis
     Dates: start: 2014, end: 2019
  42. CO QU 10 [Concomitant]
     Indication: Hypovitaminosis
     Dates: start: 2014, end: 2019

REACTIONS (5)
  - Cardiomyopathy [Fatal]
  - Chronic kidney disease [Not Recovered/Not Resolved]
  - Chronic kidney disease-mineral and bone disorder [Unknown]
  - Renal failure [Unknown]
  - Rebound acid hypersecretion [Unknown]

NARRATIVE: CASE EVENT DATE: 20140101
